FAERS Safety Report 13189403 (Version 1)
Quarter: 2017Q1

REPORT INFORMATION
  Report Type: Spontaneous
  Country: None (occurrence: US)
  Receive Date: 20170204
  Receipt Date: 20170204
  Transmission Date: 20170428
  Serious: Yes (Hospitalization)
  Sender: FDA-Public Use
  Company Number: None

PATIENT
  Age: 24 Year
  Sex: Male
  Weight: 130.9 kg

DRUGS (1)
  1. TEMOZOLOMIDE. [Suspect]
     Active Substance: TEMOZOLOMIDE
     Dates: end: 20161230

REACTIONS (6)
  - Dysarthria [None]
  - Brain midline shift [None]
  - Status epilepticus [None]
  - Brain oedema [None]
  - Nervous system disorder [None]
  - Hemiparesis [None]

NARRATIVE: CASE EVENT DATE: 20170116
